FAERS Safety Report 11291870 (Version 1)
Quarter: 2015Q3

REPORT INFORMATION
  Report Type: Spontaneous
  Country: ZA (occurrence: ZA)
  Receive Date: 20150722
  Receipt Date: 20150722
  Transmission Date: 20151125
  Serious: Yes (Hospitalization)
  Sender: FDA-Public Use
  Company Number: ZA-JNJFOC-20150711193

PATIENT
  Age: 6 Year
  Sex: Male

DRUGS (1)
  1. VERMOX [Suspect]
     Active Substance: MEBENDAZOLE
     Indication: HELMINTHIC INFECTION
     Route: 048
     Dates: start: 20150710, end: 20150710

REACTIONS (6)
  - Throat irritation [Recovered/Resolved]
  - Burn oral cavity [Recovered/Resolved]
  - Lip swelling [Recovered/Resolved]
  - Swollen tongue [Recovered/Resolved]
  - Product packaging issue [None]
  - Product colour issue [Unknown]

NARRATIVE: CASE EVENT DATE: 20150710
